FAERS Safety Report 7124473-9 (Version None)
Quarter: 2010Q4

REPORT INFORMATION
  Report Type: 
  Country: None (occurrence: None)
  Receive Date: 20101127
  Receipt Date: 20101122
  Transmission Date: 20110411
  Serious: Yes (Death)
  Sender: FDA-Public Use
  Company Number: US-ROXANE LABORATORIES, INC.-2010-RO-01180RO

PATIENT
  Age: 88 Year
  Sex: Female

DRUGS (8)
  1. MORPHINE [Suspect]
     Indication: HOSPICE CARE
     Route: 048
     Dates: start: 20100826
  2. MORPHINE [Suspect]
     Indication: BACK PAIN
  3. LORAZEPAM [Concomitant]
  4. SENNA [Concomitant]
  5. ACETAMINOPHEN [Concomitant]
  6. NAMENDA [Concomitant]
  7. VITAMIN D [Concomitant]
  8. VITAMIN B-12 [Concomitant]

REACTIONS (4)
  - DEATH [None]
  - DRUG EFFECT DECREASED [None]
  - PRODUCT TAMPERING [None]
  - RESTLESSNESS [None]
